FAERS Safety Report 18756629 (Version 1)
Quarter: 2021Q1

REPORT INFORMATION
  Report Type: Spontaneous
  Country: CA (occurrence: CA)
  Receive Date: 20210119
  Receipt Date: 20210119
  Transmission Date: 20210419
  Serious: Yes (Life-Threatening)
  Sender: FDA-Public Use
  Company Number: CA-JNJFOC-20210120146

PATIENT
  Age: 67 Year
  Sex: Male
  Weight: 75.36 kg

DRUGS (4)
  1. INVEGA SUSTENNA [Suspect]
     Active Substance: PALIPERIDONE PALMITATE
     Indication: PSYCHOTIC DISORDER
     Route: 030
  2. INVEGA SUSTENNA [Suspect]
     Active Substance: PALIPERIDONE PALMITATE
  3. INVEGA SUSTENNA [Suspect]
     Active Substance: PALIPERIDONE PALMITATE
  4. CLONAZEPAM. [Concomitant]
     Active Substance: CLONAZEPAM
     Route: 048

REACTIONS (46)
  - Anal haemorrhage [Unknown]
  - Confusional state [Unknown]
  - Dry skin [Unknown]
  - Headache [Unknown]
  - Hypoaesthesia [Unknown]
  - Injection site pain [Unknown]
  - Eye haemorrhage [Unknown]
  - Eye movement disorder [Unknown]
  - Gynaecomastia [Unknown]
  - Muscular weakness [Unknown]
  - Restlessness [Unknown]
  - Visual impairment [Unknown]
  - Agitation [Unknown]
  - Hunger [Unknown]
  - Paraesthesia [Unknown]
  - Pollakiuria [Unknown]
  - Thirst [Unknown]
  - Vasodilatation [Unknown]
  - Acne [Unknown]
  - Dyspnoea [Unknown]
  - Heart rate irregular [Unknown]
  - Hypotonia [Unknown]
  - Rhinorrhoea [Unknown]
  - Skin burning sensation [Unknown]
  - Chest pain [Unknown]
  - Chromaturia [Unknown]
  - Pain [Unknown]
  - Poor quality sleep [Unknown]
  - Vision blurred [Unknown]
  - Weight increased [Unknown]
  - Ear infection [Unknown]
  - Melanocytic naevus [Unknown]
  - Blood pressure inadequately controlled [Unknown]
  - Dizziness [Unknown]
  - Dysphagia [Unknown]
  - Epistaxis [Unknown]
  - Faeces discoloured [Unknown]
  - Muscle spasms [Unknown]
  - Pyrexia [Unknown]
  - Salivary hypersecretion [Unknown]
  - Altered state of consciousness [Unknown]
  - Amnesia [Unknown]
  - Anal incontinence [Unknown]
  - Balance disorder [Unknown]
  - Diarrhoea [Unknown]
  - Lacrimation increased [Unknown]
